FAERS Safety Report 13434579 (Version 1)
Quarter: 2017Q2

REPORT INFORMATION
  Report Type: Spontaneous
  Country: US (occurrence: US)
  Receive Date: 20170412
  Receipt Date: 20170412
  Transmission Date: 20170830
  Serious: No
  Sender: FDA-Public Use
  Company Number: None

PATIENT
  Age: 69 Year
  Sex: Female

DRUGS (1)
  1. CIMZIA [Suspect]
     Active Substance: CERTOLIZUMAB PEGOL
     Indication: RHEUMATOID ARTHRITIS
     Dosage: ?          OTHER FREQUENCY:Q2WEEKS;?
     Route: 058

REACTIONS (4)
  - Drug ineffective [None]
  - Abdominal discomfort [None]
  - Nausea [None]
  - Therapy cessation [None]

NARRATIVE: CASE EVENT DATE: 20170308
